FAERS Safety Report 6617579-1 (Version None)
Quarter: 2010Q1

REPORT INFORMATION
  Report Type: 
  Country: None (occurrence: None)
  Receive Date: 20100308
  Receipt Date: 20100302
  Transmission Date: 20100710
  Serious: Yes (Death)
  Sender: FDA-Public Use
  Company Number: JP-SANOFI-AVENTIS-2010SA002396

PATIENT
  Age: 76 Year
  Sex: Male
  Weight: 58 kg

DRUGS (7)
  1. TAXOTERE [Suspect]
     Indication: PROSTATE CANCER
     Route: 041
     Dates: start: 20091111, end: 20091211
  2. CASODEX [Concomitant]
     Indication: PROSTATE CANCER
     Route: 048
     Dates: start: 20070101, end: 20100101
  3. ZOLADEX [Concomitant]
     Indication: PROSTATE CANCER
     Route: 058
     Dates: start: 20070101, end: 20100107
  4. ZOFRAN [Concomitant]
     Route: 041
     Dates: start: 20091111, end: 20091211
  5. DEXAMETHASONE [Concomitant]
     Indication: PROPHYLAXIS
     Route: 041
     Dates: start: 20091111, end: 20091211
  6. ZANTAC [Concomitant]
     Indication: PROPHYLAXIS
     Route: 041
     Dates: start: 20091111, end: 20091211
  7. ADALAT CC [Concomitant]
     Indication: HYPERTENSION
     Route: 048

REACTIONS (1)
  - INTERSTITIAL LUNG DISEASE [None]
